FAERS Safety Report 24090507 (Version 1)
Quarter: 2024Q3

REPORT INFORMATION
  Report Type: Spontaneous
  Country: US (occurrence: None)
  Receive Date: 20240712
  Receipt Date: 20240712
  Transmission Date: 20241016
  Serious: No
  Sender: Public
  Company Number: None

PATIENT
  Age: 50 Year
  Sex: Male

DRUGS (11)
  1. CABOMETYX [Suspect]
     Active Substance: CABOZANTINIB S-MALATE
     Indication: Renal cancer
     Dosage: 60 MG DAILY ORAL ?
     Route: 048
     Dates: start: 20240530
  2. ONDANSETRON [Concomitant]
     Active Substance: ONDANSETRON
     Dates: start: 20240522
  3. TAMSULOSIN [Concomitant]
     Active Substance: TAMSULOSIN
     Dates: start: 20240522
  4. BENZONATATE [Concomitant]
     Active Substance: BENZONATATE
     Dates: start: 20240522
  5. HYDROXYZINE [Concomitant]
     Active Substance: HYDROXYZINE HYDROCHLORIDE
     Dates: start: 20240522
  6. OFLOXACIN [Concomitant]
     Active Substance: OFLOXACIN
     Dates: start: 20240522
  7. LACTULOSE [Concomitant]
     Active Substance: LACTULOSE
     Dates: start: 20240522
  8. VENTOLIN HFA [Concomitant]
     Active Substance: ALBUTEROL SULFATE
     Dates: start: 20240522
  9. PREDNISONE [Concomitant]
     Active Substance: PREDNISONE
     Dates: start: 20240522
  10. OMEPRAZOLE [Concomitant]
     Active Substance: OMEPRAZOLE
     Dates: start: 20240522
  11. ACETAMINOPHEN\HYDROCODONE [Concomitant]
     Active Substance: ACETAMINOPHEN\HYDROCODONE
     Dates: start: 20240522

REACTIONS (1)
  - Constipation [None]

NARRATIVE: CASE EVENT DATE: 20240621
